FAERS Safety Report 11778353 (Version 2)
Quarter: 2016Q3

REPORT INFORMATION
  Report Type: Spontaneous
  Country: US (occurrence: US)
  Receive Date: 20151125
  Receipt Date: 20160812
  Transmission Date: 20161109
  Serious: Yes (Other)
  Sender: FDA-Public Use
  Company Number: US-SA-2015SA191069

PATIENT
  Age: 50 Year
  Sex: Female

DRUGS (11)
  1. ROPINIROLE. [Concomitant]
     Active Substance: ROPINIROLE
  2. MODAFINIL. [Concomitant]
     Active Substance: MODAFINIL
  3. FERROUS SULFATE. [Concomitant]
     Active Substance: FERROUS SULFATE
  4. FLUCONAZOLE. [Concomitant]
     Active Substance: FLUCONAZOLE
  5. BUTALBITAL, ACETAMINOPHEN, AND CAFFEINE [Concomitant]
     Active Substance: ACETAMINOPHEN\BUTALBITAL\CAFFEINE
  6. AUBAGIO [Suspect]
     Active Substance: TERIFLUNOMIDE
     Indication: MULTIPLE SCLEROSIS
     Route: 048
     Dates: start: 201505
  7. HYDROCODONE BITARTRATE AND ACETAMINOPHEN [Concomitant]
     Active Substance: ACETAMINOPHEN\HYDROCODONE BITARTRATE
  8. RIZATRIPTAN. [Concomitant]
     Active Substance: RIZATRIPTAN
  9. ACTHAR [Concomitant]
     Active Substance: CORTICOTROPIN
  10. PROGESTERONE. [Concomitant]
     Active Substance: PROGESTERONE
  11. VENLAFAXINE [Concomitant]
     Active Substance: VENLAFAXINE HYDROCHLORIDE

REACTIONS (3)
  - Nephrolithiasis [Not Recovered/Not Resolved]
  - Fall [Unknown]
  - Clumsiness [Unknown]

NARRATIVE: CASE EVENT DATE: 2015
